FAERS Safety Report 7070547-0 (Version None)
Quarter: 2010Q4

REPORT INFORMATION
  Report Type: 
  Country: None (occurrence: None)
  Receive Date: 20101027
  Receipt Date: 20101027
  Transmission Date: 20110411
  Serious: Yes (Other)
  Sender: FDA-Public Use
  Company Number: None

PATIENT
  Age: 49 Year
  Sex: Female
  Weight: 53.0709 kg

DRUGS (2)
  1. SUDAFED 30 MG/ TABLET MCNIEL-PPC, INC [Suspect]
     Indication: HYPERSENSITIVITY
     Dosage: 30 MG/TABLET 1-2 DAY
     Dates: start: 20101011, end: 20101020
  2. SUDAFED 30 MG/ TABLET MCNIEL-PPC, INC [Suspect]
     Indication: NASAL CONGESTION
     Dosage: 30 MG/TABLET 1-2 DAY
     Dates: start: 20101011, end: 20101020

REACTIONS (2)
  - PRURITUS [None]
  - URTICARIA [None]
